FAERS Safety Report 6297328-X (Version None)
Quarter: 2009Q3

REPORT INFORMATION
  Report Type: 
  Country: None (occurrence: None)
  Receive Date: 20090805
  Receipt Date: 20090727
  Transmission Date: 20100115
  Serious: Yes (Other)
  Sender: FDA-Public Use
  Company Number: US-JNJFOC-20090708871

PATIENT
  Age: 42 Year
  Sex: Female
  Weight: 72.58 kg

DRUGS (2)
  1. EXTRA STRENGTH TYLENOL [Suspect]
     Indication: PAIN
     Route: 048
  2. BUSPAR [Concomitant]

REACTIONS (2)
  - EXPIRED DRUG ADMINISTERED [None]
  - HALLUCINATION [None]
